FAERS Safety Report 7710973-7 (Version None)
Quarter: 2011Q3

REPORT INFORMATION
  Report Type: 
  Country: None (occurrence: None)
  Receive Date: 20110825
  Receipt Date: 20110809
  Transmission Date: 20111222
  Serious: Yes (Hospitalization)
  Sender: FDA-Public Use
  Company Number: US-ASTRAZENECA-2010SE42406

PATIENT
  Age: 66 Year
  Sex: Female

DRUGS (1)
  1. NEXIUM [Suspect]
     Route: 048

REACTIONS (14)
  - DIVERTICULITIS [None]
  - MALAISE [None]
  - SPLENIC RUPTURE [None]
  - IRRITABLE BOWEL SYNDROME [None]
  - THROAT IRRITATION [None]
  - VOMITING [None]
  - DYSPEPSIA [None]
  - ASTHMA [None]
  - ABDOMINAL DISCOMFORT [None]
  - FEELING ABNORMAL [None]
  - GASTROOESOPHAGEAL REFLUX DISEASE [None]
  - DIARRHOEA [None]
  - APHAGIA [None]
  - DRUG DOSE OMISSION [None]
